FAERS Safety Report 8920880 (Version 4)
Quarter: 2013Q4

REPORT INFORMATION
  Report Type: Spontaneous
  Country: US (occurrence: US)
  Receive Date: 20121121
  Receipt Date: 20131018
  Transmission Date: 20140711
  Serious: Yes (Death, Life-Threatening, Disabling, Other)
  Sender: FDA-Public Use
  Company Number: US-009507513-1211USA007907

PATIENT
  Sex: Male
  Weight: 100.23 kg

DRUGS (3)
  1. JANUVIA [Suspect]
     Indication: TYPE 2 DIABETES MELLITUS
     Dosage: 100 MG, QD
     Route: 048
     Dates: start: 20081205, end: 20090205
  2. BYETTA [Suspect]
     Indication: TYPE 2 DIABETES MELLITUS
     Dosage: 5 MICROGRAM, BID
     Dates: start: 20071119, end: 20071219
  3. BYETTA [Suspect]
     Dosage: 10 MICROGRAM, BID
     Dates: start: 20071211, end: 20080807

REACTIONS (12)
  - Pancreatic carcinoma metastatic [Fatal]
  - Metastases to liver [Unknown]
  - Diverticulum [Unknown]
  - Enteritis infectious [Recovering/Resolving]
  - Colitis [Recovering/Resolving]
  - Intervertebral disc degeneration [Unknown]
  - Arterial disorder [Unknown]
  - Arteriosclerosis coronary artery [Unknown]
  - Radiotherapy to pancreas [Unknown]
  - Drug hypersensitivity [Unknown]
  - Diarrhoea [Recovering/Resolving]
  - Headache [Unknown]
